FAERS Safety Report 15589976 (Version 1)
Quarter: 2018Q4

REPORT INFORMATION
  Report Type: Report from Study
  Country: None (occurrence: US)
  Receive Date: 20181106
  Receipt Date: 20181106
  Transmission Date: 20190205
  Serious: Yes (Other)
  Sender: FDA-Public Use
  Company Number: US-ABBVIE-18S-163-2539764-00

PATIENT
  Age: 68 Year
  Sex: Male

DRUGS (1)
  1. CREON [Suspect]
     Active Substance: PANCRELIPASE AMYLASE\PANCRELIPASE LIPASE\PANCRELIPASE PROTEASE
     Indication: PANCREATIC FAILURE
     Dosage: 1 CAPSULE WITH EACH MEAL
     Route: 048
     Dates: start: 2011

REACTIONS (5)
  - Fall [Recovered/Resolved]
  - Ischaemic hepatitis [Recovered/Resolved]
  - Fatigue [Not Recovered/Not Resolved]
  - Hypotension [Recovering/Resolving]
  - Fall [Recovered/Resolved]

NARRATIVE: CASE EVENT DATE: 2018
